FAERS Safety Report 7618489-3 (Version None)
Quarter: 2011Q3

REPORT INFORMATION
  Report Type: 
  Country: None (occurrence: None)
  Receive Date: 20110718
  Receipt Date: 20110714
  Transmission Date: 20111222
  Serious: No
  Sender: FDA-Public Use
  Company Number: US-PFIZER INC-2011159556

PATIENT
  Sex: Female
  Weight: 77.5 kg

DRUGS (6)
  1. ZANTAC [Concomitant]
     Indication: GASTROOESOPHAGEAL REFLUX DISEASE
     Dosage: UNK
  2. PROTONIX [Concomitant]
     Indication: GASTROOESOPHAGEAL REFLUX DISEASE
     Dosage: UNK
  3. NIFEDIPINE [Suspect]
     Indication: CATHETERISATION CARDIAC
     Dosage: 30 MG, DAILY
     Route: 048
  4. PEPCID [Concomitant]
     Indication: GASTROOESOPHAGEAL REFLUX DISEASE
     Dosage: UNK
  5. NIFEDIPINE [Suspect]
     Indication: ANGINA PECTORIS
  6. NIFEDIPINE [Suspect]
     Indication: ATRIOVENTRICULAR BLOCK

REACTIONS (2)
  - DIZZINESS [None]
  - DRUG INEFFECTIVE [None]
